FAERS Safety Report 5043045-3 (Version None)
Quarter: 2006Q3

REPORT INFORMATION
  Report Type: 
  Country: None (occurrence: None)
  Receive Date: 20060705
  Receipt Date: 20060622
  Transmission Date: 20061208
  Serious: Yes (Hospitalization)
  Sender: FDA-Public Use
  Company Number: DK-NOVOPROD-254353

PATIENT
  Age: 57 Year
  Sex: Male
  Weight: 116 kg

DRUGS (19)
  1. ACETAMINOPHEN [Concomitant]
     Indication: HEADACHE
     Dosage: 500 MG, PRN
     Dates: start: 19950101
  2. FUROSEMIDE [Concomitant]
     Indication: HYPERTENSION
     Dosage: 120 MG, QD
     Dates: start: 20051117
  3. FUROSEMIDE [Concomitant]
     Dosage: 80 MG, QD
     Dates: start: 20040202, end: 20041108
  4. FUROSEMIDE [Concomitant]
     Dosage: 160 MG, QD
     Dates: start: 20041108, end: 20051117
  5. KALEORID [Concomitant]
     Indication: MINERAL SUPPLEMENTATION
     Dosage: 750 MG, QD
     Dates: start: 20041104, end: 20050307
  6. COZAAR [Concomitant]
     Indication: HYPERTENSION
     Dosage: 100 MG, QD
     Dates: start: 20050519, end: 20050818
  7. COZAAR [Concomitant]
     Dosage: 50 MG, QD
     Dates: start: 20041104, end: 20050216
  8. SPIRIX [Concomitant]
     Indication: HYPERTENSION
     Dosage: 50 MG, QD
     Dates: start: 20050307
  9. SIMVASTATIN [Concomitant]
     Indication: BLOOD CHOLESTEROL INCREASED
     Dosage: 20 MG, QD
     Dates: end: 20050818
  10. NOVORAPID FLEXPEN [Suspect]
     Indication: INSULIN-REQUIRING TYPE II DIABETES MELLITUS
     Dosage: 52 U, QD
     Route: 058
     Dates: start: 20031120
  11. BLINDED [Concomitant]
     Indication: INSULIN-REQUIRING TYPE II DIABETES MELLITUS
     Dosage: 1 TAB, BID
     Route: 048
     Dates: start: 20031120
  12. BLINDED [Concomitant]
     Dosage: 2 TAB, BID
     Route: 048
     Dates: start: 20031120
  13. OCULAC [Concomitant]
     Indication: DRY EYE
     Dosage: UNK, PRN
     Route: 031
     Dates: start: 20031010
  14. SELOZOK [Concomitant]
     Indication: PROPHYLAXIS
     Dosage: 200 MG, QD
     Dates: start: 19981130
  15. ZARATOR                            /01326101/ [Concomitant]
     Indication: HYPERLIPIDAEMIA
     Dosage: 20 MG, QD
     Dates: start: 20001122, end: 20041108
  16. COVERSYL                           /00790701/ [Concomitant]
     Indication: HYPERTENSION
     Dosage: 8 MG, QD
     Dates: start: 20020227, end: 20050307
  17. COVERSYL                           /00790701/ [Concomitant]
     Dosage: 4 MG, QD
     Dates: start: 20050307, end: 20050828
  18. COVERSYL                           /00790701/ [Concomitant]
     Dosage: 2 MG, QD
     Dates: start: 20050828
  19. ACETYLSALICYLIC ACID SRT [Concomitant]
     Indication: ANTICOAGULANT THERAPY
     Dosage: 150 MG, QD
     Dates: start: 19981129

REACTIONS (1)
  - LEFT VENTRICULAR FAILURE [None]
